FAERS Safety Report 5219180-3 (Version None)
Quarter: 2007Q1

REPORT INFORMATION
  Report Type: 
  Country: None (occurrence: None)
  Receive Date: 20070125
  Receipt Date: 20070108
  Transmission Date: 20070707
  Serious: Yes (Hospitalization)
  Sender: FDA-Public Use
  Company Number: CA-BRISTOL-MYERS SQUIBB COMPANY-13635925

PATIENT
  Age: 78 Year
  Sex: Female

DRUGS (1)
  1. METOPROLOL TARTRATE [Suspect]

REACTIONS (4)
  - AGITATION [None]
  - DISORIENTATION [None]
  - HALLUCINATION, VISUAL [None]
  - PHOBIA [None]
